FAERS Safety Report 5969273-8 (Version None)
Quarter: 2008Q4

REPORT INFORMATION
  Report Type: 
  Country: None (occurrence: None)
  Receive Date: 20081126
  Receipt Date: 20081121
  Transmission Date: 20090506
  Serious: Yes (Hospitalization)
  Sender: FDA-Public Use
  Company Number: US-B.I. PHARMACEUTICALS,INC./RIDGEFIELD-2008-BP-17785BP

PATIENT
  Sex: Male

DRUGS (3)
  1. FLOMAX [Suspect]
     Indication: BENIGN PROSTATIC HYPERPLASIA
     Dosage: .4MG
     Route: 048
     Dates: start: 20070101, end: 20081122
  2. COUMADIN [Concomitant]
     Indication: HEART VALVE OPERATION
  3. MEDICATIONS FOR HEART [Concomitant]
     Indication: CARDIAC DISORDER

REACTIONS (5)
  - FACE INJURY [None]
  - FALL [None]
  - SYNCOPE [None]
  - UNRESPONSIVE TO STIMULI [None]
  - VENTRICULAR TACHYCARDIA [None]
